FAERS Safety Report 13080945 (Version 2)
Quarter: 2017Q4

REPORT INFORMATION
  Report Type: Spontaneous
  Country: US (occurrence: US)
  Receive Date: 20170103
  Receipt Date: 20171116
  Transmission Date: 20180320
  Serious: No
  Sender: FDA-Public Use
  Company Number: US-BAUSCH-BL-2016-026226

PATIENT
  Age: 83 Year
  Sex: Female

DRUGS (2)
  1. XENAZINE [Suspect]
     Active Substance: TETRABENAZINE
     Indication: HUNTINGTON^S DISEASE
     Dosage: 18.75MG IN AM,?12.5MG AT NOON
     Route: 048
     Dates: start: 20160725
  2. XENAZINE [Suspect]
     Active Substance: TETRABENAZINE
     Route: 048
     Dates: start: 20160725

REACTIONS (3)
  - Memory impairment [Unknown]
  - Drug administration error [Unknown]
  - Hospice care [Unknown]

NARRATIVE: CASE EVENT DATE: 20161021
